FAERS Safety Report 24102544 (Version 1)
Quarter: 2024Q3

REPORT INFORMATION
  Report Type: Other
  Country: FR (occurrence: FR)
  Receive Date: 20240717
  Receipt Date: 20240717
  Transmission Date: 20241017
  Serious: Yes (Hospitalization)
  Sender: ZYDUS PHARM
  Company Number: None

PATIENT

DRUGS (11)
  1. PREGABALIN [Suspect]
     Active Substance: PREGABALIN
     Indication: Neuralgia
     Dosage: 150 MILLIGRAM, QD
     Route: 048
     Dates: start: 20240603, end: 20240611
  2. PREGABALIN [Suspect]
     Active Substance: PREGABALIN
     Dosage: 225 MILLIGRAM, QD
     Route: 048
     Dates: start: 20240612, end: 20240613
  3. TAMSULOSIN [Suspect]
     Active Substance: TAMSULOSIN
     Indication: Nephrostomy
     Dosage: 0.4 MILLIGRAM, QD
     Route: 048
     Dates: start: 20240506
  4. FUROSEMIDE [Suspect]
     Active Substance: FUROSEMIDE
     Indication: Hypertension
     Dosage: 80 MILLIGRAM, QD
     Route: 048
     Dates: start: 20240508, end: 20240612
  5. THIAMINE HYDROCHLORIDE [Suspect]
     Active Substance: THIAMINE HYDROCHLORIDE
     Indication: Vitamin supplementation
     Dosage: 6 DOSAGE FORM, QD
     Route: 048
     Dates: start: 20240611, end: 20240613
  6. ZINC GLUCONATE [Suspect]
     Active Substance: ZINC GLUCONATE
     Indication: Mineral supplementation
     Dosage: 2 DOSAGE FORM, QD
     Route: 048
     Dates: start: 20240516, end: 20240613
  7. OMNIPAQUE [Suspect]
     Active Substance: IOHEXOL
     Indication: Angiogram
     Dosage: 115 MILLILITER 1 TOTAL
     Route: 042
     Dates: start: 20240611, end: 20240611
  8. LOVENOX [Suspect]
     Active Substance: ENOXAPARIN SODIUM
     Indication: Cardiovascular event prophylaxis
     Dosage: 1 DOSAGE FORM, QD
     Route: 058
     Dates: start: 20240505, end: 20240612
  9. MAGNESIUM PIDOLATE [Suspect]
     Active Substance: MAGNESIUM PIDOLATE
     Indication: Hypomagnesaemia
     Dosage: 2 DOSAGE FORM, QD
     Route: 048
     Dates: start: 20240509, end: 20240512
  10. MAGNESIUM PIDOLATE [Suspect]
     Active Substance: MAGNESIUM PIDOLATE
     Dosage: 2 DOSAGE FORM, QD
     Route: 048
     Dates: start: 20240517, end: 20240613
  11. NIACINAMIDE [Suspect]
     Active Substance: NIACINAMIDE
     Indication: Vitamin supplementation
     Dosage: 2 DOSAGE FORM, QD
     Route: 048
     Dates: start: 20240513, end: 20240612

REACTIONS (2)
  - Dermatitis exfoliative generalised [Recovered/Resolved]
  - Eosinophilia [Recovered/Resolved]

NARRATIVE: CASE EVENT DATE: 20240612
